FAERS Safety Report 8322291-7 (Version None)
Quarter: 2012Q2

REPORT INFORMATION
  Report Type: 
  Country: None (occurrence: None)
  Receive Date: 20120430
  Receipt Date: 20120425
  Transmission Date: 20120825
  Serious: Yes (Other)
  Sender: FDA-Public Use
  Company Number: PHHY2010ZA44297

PATIENT
  Sex: Male

DRUGS (4)
  1. BISOPROLOL FUMARATE [Concomitant]
  2. DIOVAN HCT [Suspect]
     Indication: HYPERTENSION
     Dosage: 160 MG OF VALS AND12.5 MG OF HYD
     Route: 048
  3. AMLOC [Concomitant]
     Indication: HYPERTENSION
     Dosage: 10 MG, UNK
  4. INHIBACE [Concomitant]

REACTIONS (3)
  - BLOOD PRESSURE INADEQUATELY CONTROLLED [None]
  - DIABETES MELLITUS [None]
  - ANXIETY DISORDER [None]
